FAERS Safety Report 5952594-2 (Version None)
Quarter: 2008Q4

REPORT INFORMATION
  Report Type: 
  Country: None (occurrence: None)
  Receive Date: 20081031
  Receipt Date: 20070901
  Transmission Date: 20090506
  Serious: Yes (Other)
  Sender: FDA-Public Use
  Company Number: US022318

PATIENT
  Sex: Female

DRUGS (1)
  1. PROVIGIL [Suspect]
     Dosage: ORAL
     Route: 048

REACTIONS (1)
  - SUICIDAL IDEATION [None]
